FAERS Safety Report 19873198 (Version 2)
Quarter: 2021Q4

REPORT INFORMATION
  Report Type: Spontaneous
  Country: UY (occurrence: UY)
  Receive Date: 20210923
  Receipt Date: 20211026
  Transmission Date: 20220304
  Serious: No
  Sender: FDA-Public Use
  Company Number: UY-PFIZER INC-202101181399

PATIENT
  Age: 9 Year
  Sex: Male

DRUGS (1)
  1. GENOTROPIN [Suspect]
     Active Substance: SOMATROPIN
     Indication: Body height below normal
     Dosage: 0.6 TO 1 MG, 7 TIMES PER WEEK
     Dates: start: 20190508

REACTIONS (4)
  - Device issue [Unknown]
  - Poor quality device used [Unknown]
  - Device occlusion [Unknown]
  - Expired device used [Unknown]

NARRATIVE: CASE EVENT DATE: 20210908
